FAERS Safety Report 9919005 (Version 2)
Quarter: 2014Q1

REPORT INFORMATION
  Report Type: Spontaneous
  Country: US (occurrence: US)
  Receive Date: 20140224
  Receipt Date: 20140224
  Transmission Date: 20141002
  Serious: No
  Sender: FDA-Public Use
  Company Number: US-BRISTOL-MYERS SQUIBB COMPANY-17427758

PATIENT
  Sex: Female

DRUGS (2)
  1. GLUCOPHAGE TABS [Suspect]
  2. METFORMIN HCL [Suspect]

REACTIONS (2)
  - Renal disorder [Unknown]
  - Gastrointestinal disorder [Unknown]
